FAERS Safety Report 7465068-7 (Version None)
Quarter: 2011Q2

REPORT INFORMATION
  Report Type: 
  Country: None (occurrence: None)
  Receive Date: 20110509
  Receipt Date: 20110427
  Transmission Date: 20111010
  Serious: Yes (Death, Hospitalization, Other)
  Sender: FDA-Public Use
  Company Number: US-CELGENEUS-163-21880-11033316

PATIENT
  Sex: Male

DRUGS (1)
  1. REVLIMID [Suspect]
     Indication: MULTIPLE MYELOMA
     Dosage: 5 MILLIGRAM
     Route: 048
     Dates: start: 20110301, end: 20110101

REACTIONS (8)
  - AMYLOIDOSIS [None]
  - CLOSTRIDIAL INFECTION [None]
  - SEPSIS [None]
  - THROMBOCYTOPENIA [None]
  - GALLBLADDER DISORDER [None]
  - RENAL FAILURE [None]
  - GASTROINTESTINAL HAEMORRHAGE [None]
  - COLITIS [None]
